FAERS Safety Report 10097935 (Version 2)
Quarter: 2014Q2

REPORT INFORMATION
  Report Type: Spontaneous
  Country: US (occurrence: US)
  Receive Date: 20140423
  Receipt Date: 20140618
  Transmission Date: 20141212
  Serious: Yes (Hospitalization, Other)
  Sender: FDA-Public Use
  Company Number: US-PFIZER INC-2014109967

PATIENT
  Age: 44 Year
  Sex: Male
  Weight: 92.97 kg

DRUGS (2)
  1. VIAGRA [Suspect]
     Indication: ERECTILE DYSFUNCTION
     Dosage: 50 MG, AS NEEDED
     Dates: start: 2013
  2. RENAGEL [Concomitant]
     Dosage: UNK

REACTIONS (1)
  - Renal failure [Unknown]
